FAERS Safety Report 24664552 (Version 1)
Quarter: 2024Q4

REPORT INFORMATION
  Report Type: Spontaneous
  Country: US (occurrence: None)
  Receive Date: 20241125
  Receipt Date: 20241125
  Transmission Date: 20250115
  Serious: Yes (unspecified)
  Sender: Public
  Company Number: None

PATIENT
  Age: 39 Year
  Sex: Female
  Weight: 75.5 kg

DRUGS (1)
  1. FERRIC GLUCONATE TRIHYDRATE [Suspect]
     Active Substance: FERRIC GLUCONATE TRIHYDRATE
     Indication: Iron deficiency anaemia
     Dosage: 250 MG MONTHLY INTRAVENOUS BOLOUS?
     Route: 040
     Dates: start: 20200916

REACTIONS (7)
  - Headache [None]
  - Pruritus [None]
  - Paraesthesia [None]
  - Hypoaesthesia oral [None]
  - Blood pressure increased [None]
  - Muscle spasms [None]
  - Nausea [None]

NARRATIVE: CASE EVENT DATE: 20240910
